FAERS Safety Report 9138317 (Version 1)
Quarter: 2013Q1

REPORT INFORMATION
  Report Type: Spontaneous
  Country: US (occurrence: US)
  Receive Date: 20130305
  Receipt Date: 20130305
  Transmission Date: 20140127
  Serious: No
  Sender: FDA-Public Use
  Company Number: US-009507513-1303USA001288

PATIENT
  Sex: Female

DRUGS (1)
  1. IMPLANON [Suspect]
     Dosage: 1 ROD UPTO 3 YEARS
     Route: 059
     Dates: start: 20110729

REACTIONS (2)
  - Metrorrhagia [Unknown]
  - Amenorrhoea [Recovered/Resolved]
